FAERS Safety Report 22109645 (Version 1)
Quarter: 2023Q1

REPORT INFORMATION
  Report Type: Report from Study
  Country: FR (occurrence: FR)
  Receive Date: 20230317
  Receipt Date: 20230317
  Transmission Date: 20230418
  Serious: Yes (Death, Life-Threatening, Hospitalization)
  Sender: FDA-Public Use
  Company Number: FR-JNJFOC-20220451335

PATIENT
  Age: 76 Year
  Sex: Male
  Weight: 64.1 kg

DRUGS (1)
  1. TECLISTAMAB [Suspect]
     Active Substance: TECLISTAMAB
     Indication: Plasma cell myeloma refractory
     Dosage: MED KIT 710133, DOSAGE ALSO REPORTED AS 99000MCG
     Route: 058
     Dates: start: 20210113, end: 20220407

REACTIONS (2)
  - Device related bacteraemia [Recovered/Resolved]
  - COVID-19 pneumonia [Fatal]

NARRATIVE: CASE EVENT DATE: 20220423
